FAERS Safety Report 7543247-8 (Version None)
Quarter: 2011Q2

REPORT INFORMATION
  Report Type: 
  Country: None (occurrence: None)
  Receive Date: 20110613
  Receipt Date: 20110609
  Transmission Date: 20111010
  Serious: Yes (Life-Threatening, Other)
  Sender: FDA-Public Use
  Company Number: CA-NAPPMUNDI-CAN-2011-0001966

PATIENT
  Age: 76 Year
  Sex: Female

DRUGS (3)
  1. BUPIVACAINE HCL [Suspect]
     Indication: PRODUCT USED FOR UNKNOWN INDICATION
     Dosage: 2.8 ML, UNK
     Route: 065
  2. HYDROMORPHONE HCL [Suspect]
     Indication: PRODUCT USED FOR UNKNOWN INDICATION
     Dosage: 400 MCG, UNK
     Route: 065
  3. BUPIVACAINE HCL [Suspect]
     Dosage: 40.0 ML, UNK
     Route: 065

REACTIONS (3)
  - CARDIAC ARREST [None]
  - UNRESPONSIVE TO STIMULI [None]
  - BRADYCARDIA [None]
